FAERS Safety Report 8785603 (Version 3)
Quarter: 2013Q1

REPORT INFORMATION
  Report Type: Report from Study
  Country: JP (occurrence: JP)
  Receive Date: 20120914
  Receipt Date: 20130129
  Transmission Date: 20140127
  Serious: Yes (Hospitalization, Other)
  Sender: FDA-Public Use
  Company Number: JP-VERTEX PHARMACEUTICAL INC.-2012-020859

PATIENT
  Age: 63 Year
  Sex: Male

DRUGS (17)
  1. VX-950 (TELAPREVIR) [Suspect]
     Indication: CHRONIC HEPATITIS C
     Dosage: 2250 MG, QD
     Route: 048
     Dates: start: 20120712
  2. VX-950 (TELAPREVIR) [Suspect]
     Dosage: 1500 MG, QD
     Route: 048
     Dates: end: 20120927
  3. RIBAVIRIN [Suspect]
     Indication: CHRONIC HEPATITIS C
     Dosage: 600 MG, QD
     Route: 048
     Dates: start: 20120712, end: 20121010
  4. RIBAVIRIN [Suspect]
     Dosage: 400 MG, QD
     Route: 048
     Dates: start: 20121011, end: 20121031
  5. RIBAVIRIN [Suspect]
     Dosage: 200 MG, QD
     Route: 048
     Dates: start: 20121101, end: 20121121
  6. RIBAVIRIN [Suspect]
     Dosage: 400 MG, QD
     Route: 048
     Dates: start: 20121122
  7. PEGINTRON                          /01543001/ [Suspect]
     Indication: CHRONIC HEPATITIS C
     Dosage: 1.5 ?G/KG, QW
     Route: 058
     Dates: start: 20120712
  8. EPADEL                             /01682402/ [Concomitant]
     Dosage: 1800 MG, QD
     Route: 048
  9. EPADEL                             /01682402/ [Concomitant]
     Dosage: 600 MG, QD
     Route: 048
  10. GASMOTIN [Concomitant]
     Dosage: 15 MG, QD
     Route: 048
  11. ZYLORIC [Concomitant]
     Dosage: 300 MG, QD
     Route: 048
  12. ZYLORIC [Concomitant]
     Dosage: 100 MG, QD
     Route: 048
  13. LIVALO [Concomitant]
     Dosage: 2 MG, QD
     Route: 048
  14. MAINTATE [Concomitant]
     Dosage: 5 MG, QD
     Route: 048
  15. DEPAS [Concomitant]
     Dosage: 1 MG, QD
     Route: 048
  16. GASTROM [Concomitant]
     Dosage: 3 MG, QD
     Route: 048
  17. OLMETEC [Concomitant]
     Dosage: 20 MG, QD
     Route: 048

REACTIONS (4)
  - Blood creatinine increased [Not Recovered/Not Resolved]
  - Rash [Unknown]
  - Hyperuricaemia [Not Recovered/Not Resolved]
  - Anaemia [Recovered/Resolved]
